FAERS Safety Report 18535529 (Version 1)
Quarter: 2020Q4

REPORT INFORMATION
  Report Type: Spontaneous
  Country: IN (occurrence: IN)
  Receive Date: 20201123
  Receipt Date: 20201123
  Transmission Date: 20210114
  Serious: Yes (Other)
  Sender: FDA-Public Use
  Company Number: IN-MYLANLABS-2020M1096126

PATIENT
  Age: 17 Year
  Sex: Female

DRUGS (11)
  1. DAUNORUBICIN [Suspect]
     Active Substance: DAUNORUBICIN
     Dosage: 45 MILLIGRAM/SQ. METER, SECOND INDUCTION ...
  2. FLUDARABINE [Suspect]
     Active Substance: FLUDARABINE PHOSPHATE
     Indication: SALVAGE THERAPY
  3. DAUNORUBICIN [Suspect]
     Active Substance: DAUNORUBICIN
     Indication: ACUTE MYELOID LEUKAEMIA
     Dosage: 60 MILLIGRAM/SQ. METER, SHE RECEIVED FIRST INDUCTION..
  4. CYTARABINE. [Suspect]
     Active Substance: CYTARABINE
     Indication: SALVAGE THERAPY
     Dosage: UNK, SHE RECEIVED SECOND INDUCTION ..
  5. CYTARABINE. [Suspect]
     Active Substance: CYTARABINE
     Indication: ACUTE MYELOID LEUKAEMIA
     Dosage: 100 MILLIGRAM/SQ. METER, QD, SHE RECEIVED FIRST ..
  6. FILGRASTIM [Suspect]
     Active Substance: FILGRASTIM
     Indication: ACUTE MYELOID LEUKAEMIA
     Route: 065
  7. CYTARABINE. [Suspect]
     Active Substance: CYTARABINE
     Dosage: HIGH DOSES AS ..
     Route: 065
  8. CYCLOSPORINE. [Suspect]
     Active Substance: CYCLOSPORINE
     Indication: ACUTE MYELOID LEUKAEMIA
     Dosage: THE DOSE WAS TAPERED AND SUSBSEQUENTLY STOPPED ..
     Route: 065
  9. FILGRASTIM [Suspect]
     Active Substance: FILGRASTIM
     Indication: SALVAGE THERAPY
  10. FLUDARABINE [Suspect]
     Active Substance: FLUDARABINE PHOSPHATE
     Indication: DRUG THERAPY
     Dosage: INITIALLY AS CONDITIONING REGIMEN, LATER ..
     Route: 065
  11. MELPHALAN. [Suspect]
     Active Substance: MELPHALAN
     Indication: DRUG THERAPY
     Route: 065

REACTIONS (1)
  - Drug ineffective [Unknown]
